FAERS Safety Report 15573228 (Version 1)
Quarter: 2018Q4

REPORT INFORMATION
  Report Type: Spontaneous
  Country: FR (occurrence: FR)
  Receive Date: 20181101
  Receipt Date: 20181101
  Transmission Date: 20190205
  Serious: Yes (Hospitalization)
  Sender: FDA-Public Use
  Company Number: FR-ACCORD-090571

PATIENT
  Age: 79 Year
  Sex: Female

DRUGS (8)
  1. ENALAPRIL/ENALAPRIL MALEATE [Suspect]
     Active Substance: ENALAPRIL MALEATE
     Indication: HYPERTENSION
     Route: 048
  2. CHRONADALATE [Suspect]
     Active Substance: NIFEDIPINE
     Indication: HYPERTENSION
     Route: 048
     Dates: end: 201711
  3. MANTADIX [Concomitant]
     Active Substance: AMANTADINE HYDROCHLORIDE
  4. STRESAM [Concomitant]
     Active Substance: ETIFOXINE
  5. MODOPAR [Concomitant]
     Active Substance: BENSERAZIDE HYDROCHLORIDE\LEVODOPA
  6. HYDROCHLOROTHIAZIDE. [Suspect]
     Active Substance: HYDROCHLOROTHIAZIDE
     Indication: HYPERTENSION
     Route: 048
     Dates: end: 201711
  7. DIFFU K [Concomitant]
     Active Substance: POTASSIUM CHLORIDE
  8. LESCOL [Concomitant]
     Active Substance: FLUVASTATIN SODIUM

REACTIONS (3)
  - Rhabdomyolysis [Recovered/Resolved]
  - Fall [Unknown]
  - Orthostatic hypotension [Recovered/Resolved]

NARRATIVE: CASE EVENT DATE: 20171011
